FAERS Safety Report 4304504-1 (Version None)
Quarter: 2004Q1

REPORT INFORMATION
  Report Type: 
  Country: None (occurrence: None)
  Receive Date: 20040224
  Receipt Date: 20040213
  Transmission Date: 20041129
  Serious: Yes (Other)
  Sender: FDA-Public Use
  Company Number: 2004010195

PATIENT
  Age: 73 Year
  Sex: Male

DRUGS (4)
  1. LIPITOR [Suspect]
     Indication: HYPERLIPIDAEMIA
     Dosage: 10 MG (DAILY), ORAL
     Route: 048
     Dates: start: 20031101, end: 20040101
  2. DOXAZOSIN MESILATE (DOXASOZIN MESILATE) [Concomitant]
  3. AMLODIPINE BESYLATE [Concomitant]
  4. PREDNISOLONE [Concomitant]

REACTIONS (4)
  - ASTHENIA [None]
  - BLOOD CREATINE PHOSPHOKINASE INCREASED [None]
  - MYOPATHY [None]
  - RENAL IMPAIRMENT [None]
